FAERS Safety Report 9464874 (Version 2)
Quarter: 2013Q4

REPORT INFORMATION
  Report Type: Spontaneous
  Country: US (occurrence: US)
  Receive Date: 20130819
  Receipt Date: 20131105
  Transmission Date: 20140711
  Serious: Yes (Other)
  Sender: FDA-Public Use
  Company Number: US-TEVA-423745USA

PATIENT
  Sex: Female
  Weight: 72.7 kg

DRUGS (5)
  1. COPAXONE [Suspect]
     Indication: MULTIPLE SCLEROSIS
     Dates: start: 20130209
  2. AMANTADINE [Concomitant]
     Indication: MULTIPLE SCLEROSIS
     Dosage: 200 MILLIGRAM DAILY;
     Dates: start: 201307
  3. BENADRYL [Concomitant]
     Dosage: PRN
  4. IBUPROFEN [Concomitant]
     Indication: HEADACHE
     Dosage: PRN
  5. VITAMIN D [Concomitant]

REACTIONS (1)
  - Hepatic enzyme increased [Recovered/Resolved]
